FAERS Safety Report 8409619-4 (Version None)
Quarter: 2012Q2

REPORT INFORMATION
  Report Type: 
  Country: None (occurrence: None)
  Receive Date: 20120531
  Receipt Date: 20120531
  Transmission Date: 20120825
  Serious: Yes (Other)
  Sender: FDA-Public Use
  Company Number: None

PATIENT
  Age: 77 Year
  Sex: Female

DRUGS (2)
  1. SULFAMETHOXAZOLE AND TRIMETHOPRIM [Suspect]
     Indication: ARTHRITIS INFECTIVE
     Dosage: 1 TABLET 2 X DAY-10 DAYS
     Dates: start: 20120418, end: 20120428
  2. SULFAMETHOXAZOLE AND TRIMETHOPRIM [Suspect]
     Indication: POST PROCEDURAL INFECTION
     Dosage: 1 TABLET 2 X DAY-10 DAYS
     Dates: start: 20120418, end: 20120428

REACTIONS (5)
  - DIZZINESS [None]
  - FEELING ABNORMAL [None]
  - VAGINAL HAEMORRHAGE [None]
  - FATIGUE [None]
  - MUSCLE SPASMS [None]
